FAERS Safety Report 14557200 (Version 1)
Quarter: 2018Q1

REPORT INFORMATION
  Report Type: Spontaneous
  Country: NL (occurrence: NL)
  Receive Date: 20180221
  Receipt Date: 20180221
  Transmission Date: 20180509
  Serious: Yes (Other)
  Sender: FDA-Public Use
  Company Number: NL-TEVA-2018-NL-858604

PATIENT
  Age: 78 Year
  Sex: Male
  Weight: 80 kg

DRUGS (5)
  1. ASCAL (ACETYLSALICYLATE CALCIUM) [Concomitant]
     Active Substance: ASPIRIN CALCIUM
     Route: 048
  2. PARACETAMOL [Suspect]
     Active Substance: ACETAMINOPHEN
     Indication: PAIN
     Route: 048
  3. METHOTREXATE. [Suspect]
     Active Substance: METHOTREXATE
     Indication: RHEUMATOID ARTHRITIS
     Dosage: 15 MG/WK
     Route: 058
     Dates: start: 20170606, end: 20170717
  4. FOLIUMZUUR [Concomitant]
     Active Substance: FOLIC ACID
     Dosage: 5 MG/WK
     Route: 048
     Dates: start: 20030218
  5. PANTOZOL [Concomitant]
     Active Substance: PANTOPRAZOLE SODIUM
     Dosage: 20 MG DD
     Route: 048

REACTIONS (4)
  - Drug effect decreased [Unknown]
  - Aspartate aminotransferase increased [Not Recovered/Not Resolved]
  - Alanine aminotransferase increased [Not Recovered/Not Resolved]
  - Gamma-glutamyltransferase increased [Not Recovered/Not Resolved]

NARRATIVE: CASE EVENT DATE: 20170710
